FAERS Safety Report 7650260-9 (Version None)
Quarter: 2011Q3

REPORT INFORMATION
  Report Type: 
  Country: None (occurrence: None)
  Receive Date: 20110802
  Receipt Date: 20110719
  Transmission Date: 20111222
  Serious: Yes (Hospitalization)
  Sender: FDA-Public Use
  Company Number: US-ROCHE-793058

PATIENT
  Age: 52 Year
  Sex: Female
  Weight: 70 kg

DRUGS (6)
  1. BLINDED BEVACIZUMAB [Suspect]
     Dosage: FREQUENCY: OVER 30-90 MIN ON DAY 1.
     Route: 042
     Dates: start: 20090202
  2. PACLITAXEL [Suspect]
     Dosage: FREQ: 80MG/M2 IV OVER 1 HR ON DAYS 1, 8 AND 15.
     Route: 042
     Dates: start: 20090202
  3. FILGRASTIM [Suspect]
     Dosage: FREQUENCY: 5 UG/KG SQ ON DAY 2-11 OR.
     Route: 042
     Dates: start: 20090202
  4. PEGFILGRASTIM [Suspect]
     Dosage: FREQUENCY: 6MG SQ ON DAY 2
     Route: 042
     Dates: start: 20110202
  5. CYCLOPHOSPHAMIDE [Suspect]
     Dosage: FREQUENCY: 600MG/M2 IV OVER 20-30 MIN ON DAY 1.
     Route: 042
     Dates: start: 20090202
  6. DOXORUBICIN HCL [Suspect]
     Indication: BREAST CANCER
     Dosage: FREQUENCY: 60MG/M2 IVP ON DAY 1.
     Route: 042
     Dates: start: 20090202

REACTIONS (3)
  - OESOPHAGITIS [None]
  - FATIGUE [None]
  - STOMATITIS [None]
